FAERS Safety Report 16790987 (Version 2)
Quarter: 2019Q3

REPORT INFORMATION
  Report Type: Spontaneous
  Country: US (occurrence: US)
  Receive Date: 20190910
  Receipt Date: 20190923
  Transmission Date: 20191005
  Serious: Yes (Hospitalization, Other)
  Sender: FDA-Public Use
  Company Number: US-PFIZER INC-2019382275

PATIENT
  Age: 63 Year
  Sex: Female
  Weight: 81.63 kg

DRUGS (7)
  1. SYNTHROID [Concomitant]
     Active Substance: LEVOTHYROXINE SODIUM
  2. OXYCODONE [Suspect]
     Active Substance: OXYCODONE
     Indication: BACK PAIN
     Dosage: 10 MG, 2X/DAY (IN THE MIDDLE OF THE DAY AND AT NIGHT, IN MIDDLE OF THE 12HOURS OF THE MORPHINE)
  3. EMBEDA [Concomitant]
     Active Substance: MORPHINE SULFATE\NALTREXONE HYDROCHLORIDE
     Indication: SCIATICA
  4. EMBEDA [Concomitant]
     Active Substance: MORPHINE SULFATE\NALTREXONE HYDROCHLORIDE
     Indication: BACK PAIN
     Dosage: 20 MG/0.8 MG, 1X/DAY
     Dates: start: 2019
  5. OXYCODONE [Suspect]
     Active Substance: OXYCODONE
     Indication: SCIATICA
  6. MORPHINE SULFATE. [Suspect]
     Active Substance: MORPHINE SULFATE
     Indication: BACK PAIN
     Dosage: 15 MG, 2X/DAY
  7. MORPHINE SULFATE. [Suspect]
     Active Substance: MORPHINE SULFATE
     Indication: SCIATICA

REACTIONS (2)
  - Rotator cuff syndrome [Recovered/Resolved]
  - Withdrawal syndrome [Recovered/Resolved]

NARRATIVE: CASE EVENT DATE: 20190304
